FAERS Safety Report 12068386 (Version 1)
Quarter: 2016Q1

REPORT INFORMATION
  Report Type: Spontaneous
  Country: US (occurrence: US)
  Receive Date: 20160211
  Receipt Date: 20160211
  Transmission Date: 20160526
  Serious: No
  Sender: FDA-Public Use
  Company Number: US-SMITH AND NEPHEW, INC-2015SMT00594

PATIENT
  Age: 66 Year
  Sex: Female

DRUGS (2)
  1. REGRANEX [Suspect]
     Active Substance: BECAPLERMIN
     Indication: WOUND
  2. MUPIROCIN. [Suspect]
     Active Substance: MUPIROCIN

REACTIONS (5)
  - Poor peripheral circulation [Unknown]
  - Pulse abnormal [Recovering/Resolving]
  - Wound complication [Recovering/Resolving]
  - Oedema peripheral [Recovering/Resolving]
  - Off label use [Unknown]

NARRATIVE: CASE EVENT DATE: 201511
